FAERS Safety Report 12226932 (Version 3)
Quarter: 2016Q3

REPORT INFORMATION
  Report Type: Report from Study
  Country: DE (occurrence: DE)
  Receive Date: 20160331
  Receipt Date: 20160819
  Transmission Date: 20161109
  Serious: Yes (Other)
  Sender: FDA-Public Use
  Company Number: DE-INCYTE CORPORATION-2016IN000475

PATIENT
  Sex: Female
  Weight: 69 kg

DRUGS (5)
  1. INCB018424 [Suspect]
     Active Substance: RUXOLITINIB
     Indication: MYELOFIBROSIS
     Dosage: UNK
     Route: 048
     Dates: start: 20151021
  2. INCB018424 [Suspect]
     Active Substance: RUXOLITINIB
     Dosage: 30 MG (QD), TWICE
     Route: 048
     Dates: start: 20151215, end: 20151215
  3. ASPIRIN. [Concomitant]
     Active Substance: ASPIRIN
     Indication: PROPHYLAXIS
     Dosage: 100 MG, QD
     Route: 065
     Dates: start: 201306
  4. INCB018424 [Suspect]
     Active Substance: RUXOLITINIB
     Dosage: 20 MG (QD), TWICE
     Route: 048
     Dates: start: 20160110
  5. NORSPAN [Concomitant]
     Active Substance: BUPRENORPHINE
     Indication: PAIN
     Dosage: 2 MG, QD
     Route: 065
     Dates: start: 20140404

REACTIONS (14)
  - Anaemia [Recovered/Resolved]
  - Fall [Recovered/Resolved]
  - Haematoma [Not Recovered/Not Resolved]
  - Dizziness [Not Recovered/Not Resolved]
  - Blood iron decreased [Not Recovered/Not Resolved]
  - General physical health deterioration [Recovered/Resolved]
  - Oedema peripheral [Recovered/Resolved]
  - Anaemia [Recovered/Resolved]
  - Periorbital haematoma [Recovered/Resolved]
  - Abdominal pain upper [Recovered/Resolved]
  - Hand fracture [Recovered/Resolved]
  - Thrombocytopenia [Recovered/Resolved]
  - White blood cell count increased [Unknown]
  - Anaemia [Not Recovered/Not Resolved]

NARRATIVE: CASE EVENT DATE: 20151118
